FAERS Safety Report 9357369 (Version 1)
Quarter: 2013Q2

REPORT INFORMATION
  Report Type: Spontaneous
  Country: US (occurrence: US)
  Receive Date: 20130620
  Receipt Date: 20130620
  Transmission Date: 20140414
  Serious: Yes (Death)
  Sender: FDA-Public Use
  Company Number: US-JNJFOC-20130607243

PATIENT
  Sex: 0

DRUGS (7)
  1. DOXORUBICIN [Suspect]
     Indication: SARCOMA
     Dosage: OVER 48 HOURS ON DAY 1
     Route: 042
  2. VINCRISTINE [Suspect]
     Indication: SARCOMA
     Dosage: ON DAY 1, 8 AND 15
     Route: 042
  3. CYCLOPHOSPHAMIDE [Suspect]
     Indication: SARCOMA
     Dosage: ON DAY 1 AND 2 OVER 1 HOUR
     Route: 042
  4. MESNA [Suspect]
     Indication: PROPHYLAXIS
     Dosage: ON DAY 1 AND 2 OVER 1 HOUR
     Route: 042
  5. PEGFILGRASTIM [Suspect]
     Indication: COLONY STIMULATING FACTOR THERAPY
     Dosage: ON DAY 1 AND 2 OVER 1 HOUR
     Route: 058
  6. IFOSFAMIDE [Suspect]
     Indication: SARCOMA
     Dosage: OVER 1 HOUR FOR 5 DAYS
     Route: 042
  7. ETOPOSIDE [Suspect]
     Indication: SARCOMA
     Dosage: OVER 1 HOUR FOR 5 DAYS
     Route: 042

REACTIONS (3)
  - Respiratory acidosis [Fatal]
  - Neutropenia [Unknown]
  - Off label use [Unknown]
